FAERS Safety Report 13372156 (Version 1)
Quarter: 2017Q1

REPORT INFORMATION
  Report Type: Other
  Country: US (occurrence: US)
  Receive Date: 20170327
  Receipt Date: 20170327
  Transmission Date: 20170429
  Serious: Yes (Life-Threatening, Hospitalization, Other)
  Sender: FDA-Public Use
  Company Number: US-DEXPHARM-20170406

PATIENT
  Age: 67 Year
  Sex: Male
  Weight: 79.3 kg

DRUGS (19)
  1. VORICONAZOLE. [Suspect]
     Active Substance: VORICONAZOLE
     Indication: BRONCHOPULMONARY ASPERGILLOSIS
     Dosage: DAILY DOSE: 200 MG MILLGRAM(S) EVERY 12 HOURS
     Route: 048
  2. SENNOSIDES. [Concomitant]
     Active Substance: SENNOSIDES
     Indication: CONSTIPATION
     Dosage: DAILY DOSE: 17.2 MG MILLGRAM(S) EVERY DAYS
  3. PREDNISONE. [Concomitant]
     Active Substance: PREDNISONE
     Indication: POLYCHONDRITIS
     Dosage: DAILY DOSE: 40 MG MILLGRAM(S) EVERY DAYS
  4. VALACICLOVIR [Concomitant]
     Active Substance: VALACYCLOVIR HYDROCHLORIDE
     Indication: INFECTION PROPHYLAXIS
     Dosage: DAILY DOSE: 500 MG MILLGRAM(S) EVERY DAYS
  5. SULFAMETHOXAZOLE 400MG/TRIMETHOPRIM 80MG [Concomitant]
     Indication: INFECTION PROPHYLAXIS
  6. VANCOMYCIN [Concomitant]
     Active Substance: VANCOMYCIN
  7. CREON [Concomitant]
     Active Substance: PANCRELIPASE AMYLASE\PANCRELIPASE LIPASE\PANCRELIPASE PROTEASE
     Indication: PANCREATITIS CHRONIC
     Dosage: 3 TIMES A DAY WITH MEALS
     Route: 048
  8. BUDESONIDE/FORMOTEROL  80/4.5 MCG [Concomitant]
     Indication: CHRONIC OBSTRUCTIVE PULMONARY DISEASE
     Dosage: 2 PUFFS INHALED TWICE DAILY
     Route: 055
  9. SULFAMETHOXAZOLE/TRIMETHOPRIM [Concomitant]
     Active Substance: SULFAMETHOXAZOLE\TRIMETHOPRIM
     Indication: PNEUMONIA
  10. AZATHIOPRINE. [Concomitant]
     Active Substance: AZATHIOPRINE
     Indication: POLYCHONDRITIS
     Dosage: DAILY DOSE: 150 MG MILLGRAM(S) EVERY DAYS
     Route: 048
  11. CEFEPIME [Concomitant]
     Active Substance: CEFEPIME HYDROCHLORIDE
  12. TAMSULOSIN [Concomitant]
     Active Substance: TAMSULOSIN
     Indication: BENIGN PROSTATIC HYPERPLASIA
     Dosage: DAILY DOSE: 0.4 MG MILLGRAM(S) EVERY DAYS
  13. NIFEDIPINE. [Concomitant]
     Active Substance: NIFEDIPINE
     Indication: HYPERTENSION
     Dosage: DAILY DOSE: 30 MG MILLGRAM(S) EVERY DAYS
  14. ALBUTEROL 100 MCG, IPRATROPIUM 20 MCG [Concomitant]
     Indication: CHRONIC OBSTRUCTIVE PULMONARY DISEASE
     Dosage: 1 PUFF INHALED EVERY 6 HOURS
     Route: 055
  15. SALBUTAMOL [Concomitant]
     Active Substance: ALBUTEROL
     Indication: DYSPNOEA
     Dosage: 2 PUFFS INHALED EVERY 6 HOURS AS NEEDED
     Route: 045
  16. METRONIDAZOLE. [Concomitant]
     Active Substance: METRONIDAZOLE
  17. TRAMADOL. [Interacting]
     Active Substance: TRAMADOL
     Indication: PAIN
     Dosage: 1-2 TABLETS; AS NEEDED
  18. VORICONAZOLE. [Interacting]
     Active Substance: VORICONAZOLE
     Indication: BRONCHOPULMONARY ASPERGILLOSIS
     Dosage: FOR 2 DOSES
     Route: 048
  19. OMEPRAZOLE. [Interacting]
     Active Substance: OMEPRAZOLE
     Indication: PROPHYLAXIS AGAINST GASTROINTESTINAL ULCER

REACTIONS (5)
  - Confusional state [Unknown]
  - Toxicity to various agents [Unknown]
  - Hallucination [Unknown]
  - Suicidal ideation [Unknown]
  - Drug interaction [Unknown]
